FAERS Safety Report 8074600-4 (Version None)
Quarter: 2012Q1

REPORT INFORMATION
  Report Type: 
  Country: None (occurrence: None)
  Receive Date: 20120126
  Receipt Date: 20120123
  Transmission Date: 20120608
  Serious: Yes (Other)
  Sender: FDA-Public Use
  Company Number: JP-PFIZER INC-2012008828

PATIENT
  Age: 35 Year
  Sex: Female

DRUGS (3)
  1. PROMAZINE HYDROCHLORIDE [Concomitant]
  2. ZOLOFT [Suspect]
     Dosage: 50 MG, DAILY
     Route: 048
  3. ABILIFY [Concomitant]

REACTIONS (1)
  - COLITIS ULCERATIVE [None]
